FAERS Safety Report 23293267 (Version 3)
Quarter: 2024Q3

REPORT INFORMATION
  Report Type: Spontaneous
  Country: HR (occurrence: None)
  Receive Date: 20231213
  Receipt Date: 20240822
  Transmission Date: 20241017
  Serious: No
  Sender: ASTRAZENECA
  Company Number: 2023A278408

PATIENT
  Age: 68 Year
  Sex: Female
  Weight: 130 kg

DRUGS (2)
  1. DAPAGLIFLOZIN [Suspect]
     Active Substance: DAPAGLIFLOZIN
     Indication: Cardiac failure
     Route: 048
     Dates: start: 202108
  2. DAPAGLIFLOZIN [Suspect]
     Active Substance: DAPAGLIFLOZIN
     Indication: Type 2 diabetes mellitus
     Route: 048
     Dates: start: 202108

REACTIONS (1)
  - Weight decreased [Unknown]
